FAERS Safety Report 8805550 (Version 1)
Quarter: 2012Q4

REPORT INFORMATION
  Report Type: 
  Country: US (occurrence: US)
  Receive Date: 20120924
  Receipt Date: 20120924
  Transmission Date: 20130627
  Serious: Yes (Other)
  Sender: FDA-Public Use
  Company Number: US-ASTRAZENECA-2012SE72095

PATIENT
  Age: 49 Year
  Sex: Female
  Weight: 59 kg

DRUGS (19)
  1. NEXIUM [Suspect]
     Indication: EROSIVE OESOPHAGITIS
     Route: 048
     Dates: start: 1998
  2. NEXIUM [Suspect]
     Indication: GASTROOESOPHAGEAL REFLUX DISEASE
     Route: 048
     Dates: start: 1998
  3. NEXIUM [Suspect]
     Indication: EROSIVE OESOPHAGITIS
     Route: 048
  4. NEXIUM [Suspect]
     Indication: GASTROOESOPHAGEAL REFLUX DISEASE
     Route: 048
  5. NEXIUM [Suspect]
     Indication: EROSIVE OESOPHAGITIS
     Route: 048
     Dates: start: 20120821, end: 20120828
  6. NEXIUM [Suspect]
     Indication: GASTROOESOPHAGEAL REFLUX DISEASE
     Route: 048
     Dates: start: 20120821, end: 20120828
  7. NEXIUM [Suspect]
     Indication: EROSIVE OESOPHAGITIS
     Route: 048
  8. NEXIUM [Suspect]
     Indication: GASTROOESOPHAGEAL REFLUX DISEASE
     Route: 048
  9. INTERFERON [Suspect]
     Indication: HEPATITIS C
     Route: 065
     Dates: start: 20070214
  10. RIBAVIRIN [Suspect]
     Indication: HEPATITIS C
     Route: 065
     Dates: start: 20070214
  11. MAGNESIUM SUPPLEMENT [Concomitant]
     Indication: BLOOD MAGNESIUM
     Route: 048
     Dates: start: 2012
  12. PREMARIN [Concomitant]
     Indication: POSTOPERATIVE CARE
     Route: 048
     Dates: start: 1994
  13. VITAMIN D [Concomitant]
     Route: 048
     Dates: start: 2010
  14. VENTOLIN [Concomitant]
     Indication: ALLERGY TO ANIMAL
     Dosage: AS NEEDED
     Route: 055
  15. FIORINAL [Concomitant]
     Indication: MIGRAINE
     Dosage: AS NEEDED
     Route: 048
  16. VITAMIN C [Concomitant]
     Route: 048
  17. VITAMIN B COMPLEX [Concomitant]
     Route: 048
  18. ZANTAC [Concomitant]
     Indication: EROSIVE OESOPHAGITIS
     Route: 048
     Dates: start: 2011
  19. ZANTAC [Concomitant]
     Indication: GASTROOESOPHAGEAL REFLUX DISEASE
     Route: 048
     Dates: start: 2011

REACTIONS (20)
  - Retinal haemorrhage [Unknown]
  - Blindness [Unknown]
  - Off label use [Unknown]
  - Abdominal pain [Unknown]
  - Burning sensation [Unknown]
  - Dysphonia [Unknown]
  - Cough [Unknown]
  - Alopecia [Recovered/Resolved]
  - Bone loss [Unknown]
  - Osteopenia [Unknown]
  - Blood magnesium decreased [Unknown]
  - Vitamin D decreased [Unknown]
  - Muscle spasms [Unknown]
  - Tetany [Unknown]
  - Allergy to animal [Unknown]
  - Food allergy [Unknown]
  - Gastrooesophageal reflux disease [Unknown]
  - Erosive oesophagitis [Unknown]
  - Drug ineffective [Unknown]
  - Condition aggravated [Unknown]
